FAERS Safety Report 5304674-2 (Version None)
Quarter: 2007Q2

REPORT INFORMATION
  Report Type: 
  Country: None (occurrence: None)
  Receive Date: 20070416
  Receipt Date: 20070404
  Transmission Date: 20071010
  Serious: Yes (Hospitalization)
  Sender: FDA-Public Use
  Company Number: MEDI-0004378

PATIENT
  Age: 4 Month
  Weight: 4.5 kg

DRUGS (5)
  1. SYNAGIS [Suspect]
     Indication: ANTIVIRAL PROPHYLAXIS
     Dosage: 68 MG, INTRAMUSCULAR; 40 MG INTRAMUSULAR; 68 MG INTRAMUSCULAR; 70 MG INTRAMUSCULAR; 96 MG INTRAMUSCU
     Route: 030
     Dates: start: 20051005, end: 20051102
  2. SYNAGIS [Suspect]
     Indication: ANTIVIRAL PROPHYLAXIS
     Dosage: 68 MG, INTRAMUSCULAR; 40 MG INTRAMUSULAR; 68 MG INTRAMUSCULAR; 70 MG INTRAMUSCULAR; 96 MG INTRAMUSCU
     Route: 030
     Dates: start: 20060225, end: 20060225
  3. SYNAGIS [Suspect]
     Indication: ANTIVIRAL PROPHYLAXIS
     Dosage: 68 MG, INTRAMUSCULAR; 40 MG INTRAMUSULAR; 68 MG INTRAMUSCULAR; 70 MG INTRAMUSCULAR; 96 MG INTRAMUSCU
     Route: 030
     Dates: start: 20051005
  4. SYNAGIS [Suspect]
     Indication: ANTIVIRAL PROPHYLAXIS
     Dosage: 68 MG, INTRAMUSCULAR; 40 MG INTRAMUSULAR; 68 MG INTRAMUSCULAR; 70 MG INTRAMUSCULAR; 96 MG INTRAMUSCU
     Route: 030
     Dates: start: 20051230
  5. SYNAGIS [Suspect]
     Indication: ANTIVIRAL PROPHYLAXIS
     Dosage: 68 MG, INTRAMUSCULAR; 40 MG INTRAMUSULAR; 68 MG INTRAMUSCULAR; 70 MG INTRAMUSCULAR; 96 MG INTRAMUSCU
     Route: 030
     Dates: start: 20060128

REACTIONS (2)
  - ASTHMA [None]
  - BRONCHIOLITIS [None]
